FAERS Safety Report 8027838-6 (Version None)
Quarter: 2012Q1

REPORT INFORMATION
  Report Type: 
  Country: None (occurrence: None)
  Receive Date: 20120106
  Receipt Date: 20111227
  Transmission Date: 20120608
  Serious: Yes (Hospitalization)
  Sender: FDA-Public Use
  Company Number: US-UCBSA-045294

PATIENT
  Age: 40 Year
  Sex: Female

DRUGS (1)
  1. CIMZIA [Suspect]
     Indication: CROHN'S DISEASE
     Dosage: DOSE: UNKNOWN
     Route: 058

REACTIONS (4)
  - UROSEPSIS [None]
  - NEPHROLITHIASIS [None]
  - NEPHRITIS [None]
  - CALCULUS URETERIC [None]
